FAERS Safety Report 9000723 (Version 3)
Quarter: 2013Q1

REPORT INFORMATION
  Report Type: Report from Study
  Country: US (occurrence: US)
  Receive Date: 20130107
  Receipt Date: 20130204
  Transmission Date: 20140127
  Serious: Yes (Death, Hospitalization)
  Sender: FDA-Public Use
  Company Number: US-JNJFOC-20121212494

PATIENT
  Age: 51 Year
  Sex: Male
  Weight: 85.26 kg

DRUGS (9)
  1. IBUPROFEN [Suspect]
     Indication: RHEUMATOID ARTHRITIS
     Route: 048
     Dates: start: 20110831, end: 20111121
  2. IBUPROFEN [Suspect]
     Indication: OSTEOARTHRITIS
     Route: 048
     Dates: start: 20110831, end: 20111121
  3. LEXAPRO [Concomitant]
     Indication: ANXIETY
     Route: 048
     Dates: start: 201107
  4. CRESTOR [Concomitant]
     Indication: BLOOD CHOLESTEROL INCREASED
     Route: 048
     Dates: start: 20111119
  5. CLARITIN [Concomitant]
     Indication: HYPERSENSITIVITY
     Route: 048
     Dates: start: 2010
  6. N-ACETYLCYSTEINE [Concomitant]
     Indication: IDIOPATHIC PULMONARY FIBROSIS
     Route: 048
     Dates: start: 2008
  7. XANAX [Concomitant]
     Indication: ANXIETY
     Route: 048
     Dates: start: 20110829
  8. NEXIUM [Concomitant]
     Indication: PROPHYLAXIS
     Route: 048
     Dates: start: 20111027
  9. FLONASE [Concomitant]
     Indication: HYPERSENSITIVITY
     Dosage: 2 SPRAYS PER NOSTRIL
     Route: 045
     Dates: start: 2010

REACTIONS (5)
  - Cardiac failure [Fatal]
  - Sepsis [Fatal]
  - Pneumonia [Fatal]
  - Idiopathic pulmonary fibrosis [Fatal]
  - Disease progression [Fatal]
